FAERS Safety Report 24703726 (Version 3)
Quarter: 2025Q3

REPORT INFORMATION
  Report Type: Spontaneous
  Country: CA (occurrence: CA)
  Receive Date: 20241206
  Receipt Date: 20250701
  Transmission Date: 20251020
  Serious: Yes (Other)
  Sender: CELLTRION
  Company Number: CA-CELLTRION INC.-2024CA030683

PATIENT

DRUGS (18)
  1. YUFLYMA [Suspect]
     Active Substance: ADALIMUMAB-AATY
     Indication: Rheumatoid arthritis
  2. BUDESONIDE [Concomitant]
     Active Substance: BUDESONIDE
  3. CAMBIA [Concomitant]
     Active Substance: DICLOFENAC POTASSIUM
     Dates: start: 20211012
  4. CYCLOBENZAPRINE [Concomitant]
     Active Substance: CYCLOBENZAPRINE
     Dates: start: 20211012
  5. EFFEXOR [Concomitant]
     Active Substance: VENLAFAXINE HYDROCHLORIDE
     Dates: start: 20221215, end: 202409
  6. EFFEXOR [Concomitant]
     Active Substance: VENLAFAXINE HYDROCHLORIDE
     Dates: start: 202409
  7. ESOMEPRAZOLE [Concomitant]
     Active Substance: ESOMEPRAZOLE
     Dates: start: 20230918, end: 202401
  8. ESOMEPRAZOLE [Concomitant]
     Active Substance: ESOMEPRAZOLE
     Dates: start: 202401
  9. ESOMEPRAZOLE [Suspect]
     Active Substance: ESOMEPRAZOLE
  10. FOLIC ACID [Concomitant]
     Active Substance: FOLIC ACID
     Dates: start: 20211119
  11. LEFLUNOMIDE [Concomitant]
     Active Substance: LEFLUNOMIDE
     Dates: start: 20221215, end: 20230919
  12. MELOXICAM [Concomitant]
     Active Substance: MELOXICAM
     Dates: start: 20230918
  13. METHOTREXATE [Concomitant]
     Active Substance: METHOTREXATE
     Dates: start: 20211119
  14. BUDESONIDE [Concomitant]
     Active Substance: BUDESONIDE
     Dates: start: 20231220
  15. SUMATRIPTAN [Concomitant]
     Active Substance: SUMATRIPTAN
     Dates: start: 20211012
  16. VENLAFAXINE HYDROCHLORIDE [Concomitant]
     Active Substance: VENLAFAXINE HYDROCHLORIDE
  17. VENLAFAXINE HYDROCHLORIDE [Concomitant]
     Active Substance: VENLAFAXINE HYDROCHLORIDE
  18. VITAMIN D NOS [Concomitant]
     Active Substance: CHOLECALCIFEROL\ERGOCALCIFEROL
     Dates: start: 20211119

REACTIONS (1)
  - Sarcoma uterus [Unknown]

NARRATIVE: CASE EVENT DATE: 20240901
